FAERS Safety Report 23298696 (Version 1)
Quarter: 2023Q4

REPORT INFORMATION
  Report Type: Spontaneous
  Country: US (occurrence: US)
  Receive Date: 20231214
  Receipt Date: 20231214
  Transmission Date: 20240110
  Serious: Yes (Hospitalization)
  Sender: FDA-Public Use
  Company Number: US-DENDREON PHARMACEUTICAL LLC-2023DEN000305

PATIENT

DRUGS (15)
  1. PROVENGE [Suspect]
     Active Substance: SIPULEUCEL-T
     Indication: Prostate cancer metastatic
     Dosage: DOSE 1
     Route: 042
     Dates: start: 20231102, end: 20231102
  2. PROVENGE [Suspect]
     Active Substance: SIPULEUCEL-T
     Dosage: DOSE 2
     Route: 042
     Dates: start: 20231116, end: 20231116
  3. PROVENGE [Suspect]
     Active Substance: SIPULEUCEL-T
     Dosage: DOSE 3
     Route: 042
     Dates: start: 20231130, end: 20231130
  4. LUPRON [Concomitant]
     Active Substance: LEUPROLIDE ACETATE
     Indication: Prostate cancer metastatic
     Dosage: UNK, UNKNOWN
     Route: 065
  5. ALLOPURINOL [Concomitant]
     Active Substance: ALLOPURINOL
     Indication: Gout
     Dosage: UNK, UNKNOWN
     Route: 065
  6. AMILORIDE [Concomitant]
     Active Substance: AMILORIDE
     Indication: Hypertension
     Dosage: UNK, UNKNOWN
     Route: 065
  7. AMLODIPINE [Concomitant]
     Active Substance: AMLODIPINE BESYLATE
     Indication: Hypertension
     Dosage: UNK, UNKNOWN
     Route: 065
  8. VITAMIN D NOS [Concomitant]
     Active Substance: VITAMIN D NOS
     Indication: Product used for unknown indication
     Dosage: UNK, UNKNOWN
     Route: 065
  9. CALCIUM [Concomitant]
     Active Substance: CALCIUM
     Indication: Product used for unknown indication
     Dosage: UNK, UNKNOWN
     Route: 065
  10. AVODART [Concomitant]
     Active Substance: DUTASTERIDE
     Indication: Product used for unknown indication
     Dosage: UNK, UNKNOWN
     Route: 065
  11. CRESTOR [Concomitant]
     Active Substance: ROSUVASTATIN CALCIUM
     Indication: Product used for unknown indication
     Dosage: UNK, UNKNOWN
     Route: 065
  12. VALSARTAN [Concomitant]
     Active Substance: VALSARTAN
     Indication: Hypertension
     Dosage: UNK, UNKNOWN
     Route: 065
  13. ELIQUIS [Concomitant]
     Active Substance: APIXABAN
     Indication: Jugular vein thrombosis
     Dosage: UNK, UNKNOWN
     Route: 065
     Dates: start: 20231117
  14. KLOR-CON/EF [Concomitant]
     Active Substance: POTASSIUM BICARBONATE
     Indication: Product used for unknown indication
     Dosage: UNK, UNKNOWN
     Route: 065
  15. UNSPECIFIED INGREDIENT [Concomitant]
     Active Substance: UNSPECIFIED INGREDIENT
     Indication: Product used for unknown indication
     Dosage: UNK, UNKNOWN
     Route: 047

REACTIONS (2)
  - Atrial fibrillation [Recovered/Resolved]
  - Infusion related reaction [Recovered/Resolved]

NARRATIVE: CASE EVENT DATE: 20231130
